FAERS Safety Report 19802273 (Version 1)
Quarter: 2021Q3

REPORT INFORMATION
  Report Type: Spontaneous
  Country: US (occurrence: US)
  Receive Date: 20210907
  Receipt Date: 20210907
  Transmission Date: 20211014
  Serious: Yes (Hospitalization)
  Sender: FDA-Public Use
  Company Number: None

PATIENT
  Age: 70 Year
  Sex: Female

DRUGS (1)
  1. HUMIRA [Suspect]
     Active Substance: ADALIMUMAB
     Indication: RHEUMATOID ARTHRITIS
     Dosage: OTHER FREQUENCY:QWEEK;?
     Route: 058
     Dates: start: 20180313

REACTIONS (3)
  - Therapy interrupted [None]
  - Cardiac operation [None]
  - Myocardial infarction [None]

NARRATIVE: CASE EVENT DATE: 20210709
